FAERS Safety Report 9472308 (Version 1)
Quarter: 2013Q3

REPORT INFORMATION
  Report Type: Spontaneous
  Country: US (occurrence: US)
  Receive Date: 20130823
  Receipt Date: 20130823
  Transmission Date: 20140515
  Serious: No
  Sender: FDA-Public Use
  Company Number: US-JNJFOC-20130809927

PATIENT
  Sex: Male

DRUGS (1)
  1. DURAGESIC [Suspect]
     Indication: PRODUCT USED FOR UNKNOWN INDICATION
     Route: 062
     Dates: start: 2013

REACTIONS (5)
  - Withdrawal syndrome [Not Recovered/Not Resolved]
  - Product quality issue [Recovered/Resolved]
  - Drug dose omission [Recovered/Resolved]
  - Product quality issue [Not Recovered/Not Resolved]
  - Feeling abnormal [Not Recovered/Not Resolved]
